FAERS Safety Report 8915725 (Version 2)
Quarter: 2015Q3

REPORT INFORMATION
  Report Type: Spontaneous
  Country: US (occurrence: US)
  Receive Date: 20121119
  Receipt Date: 20150715
  Transmission Date: 20151125
  Serious: Yes (Other)
  Sender: FDA-Public Use
  Company Number: US-TEVA-370492USA

PATIENT
  Sex: Female
  Weight: 77.18 kg

DRUGS (3)
  1. PANTOPRAZOLE [Suspect]
     Active Substance: PANTOPRAZOLE SODIUM
     Indication: GASTRIC PH DECREASED
     Route: 065
     Dates: start: 2011, end: 2011
  2. PROTONIX [Suspect]
     Active Substance: PANTOPRAZOLE SODIUM
     Indication: GASTRIC PH DECREASED
     Dosage: 40 MILLIGRAM DAILY;
     Route: 048
     Dates: start: 2002
  3. NEXIUM [Suspect]
     Active Substance: ESOMEPRAZOLE MAGNESIUM
     Indication: GASTRIC PH DECREASED
     Route: 065

REACTIONS (10)
  - Drug effect decreased [Unknown]
  - Insomnia [Unknown]
  - Nephrolithiasis [Recovered/Resolved]
  - Gastrooesophageal reflux disease [Unknown]
  - Rash generalised [Recovered/Resolved]
  - Malaise [Unknown]
  - Pain [Recovered/Resolved]
  - Drug ineffective [Unknown]
  - Burn oesophageal [Unknown]
  - Rash [Recovered/Resolved]

NARRATIVE: CASE EVENT DATE: 2011
